FAERS Safety Report 9881540 (Version 2)
Quarter: 2014Q1

REPORT INFORMATION
  Report Type: Spontaneous
  Country: US (occurrence: US)
  Receive Date: 20140207
  Receipt Date: 20140207
  Transmission Date: 20141002
  Serious: No
  Sender: FDA-Public Use
  Company Number: US-MYLANLABS-2013S1027790

PATIENT
  Age: 67 Year
  Sex: Female

DRUGS (8)
  1. MORPHINE SULFATE EXTENDED-RELEASE TABLETS [Suspect]
     Indication: BONE PAIN
     Route: 048
     Dates: start: 20131115, end: 20131115
  2. OXYCODONE [Concomitant]
     Indication: PAIN
     Dosage: USING 15MG TABLET X 6 PER DAY
     Route: 048
     Dates: start: 2009
  3. METOPROLOL [Concomitant]
     Indication: BLOOD PRESSURE INCREASED
     Route: 048
  4. GABAPENTIN [Concomitant]
     Indication: RESTLESS LEGS SYNDROME
     Route: 048
  5. SYMBICORT [Concomitant]
     Indication: CHRONIC OBSTRUCTIVE PULMONARY DISEASE
     Route: 055
  6. PROAIR HFA [Concomitant]
     Indication: CHRONIC OBSTRUCTIVE PULMONARY DISEASE
     Route: 055
  7. CELEXA [Concomitant]
     Indication: DEPRESSION
     Route: 048
  8. RANITIDINE [Concomitant]
     Indication: GASTROOESOPHAGEAL REFLUX DISEASE
     Dosage: 150MG TABS
     Route: 048

REACTIONS (2)
  - Euphoric mood [Recovered/Resolved]
  - Insomnia [Recovered/Resolved]
